FAERS Safety Report 15379550 (Version 1)
Quarter: 2018Q3

REPORT INFORMATION
  Report Type: Spontaneous
  Country: US (occurrence: US)
  Receive Date: 20180913
  Receipt Date: 20180913
  Transmission Date: 20181010
  Serious: Yes (Death, Hospitalization, Other)
  Sender: FDA-Public Use
  Company Number: US-SA-2018SA248198

PATIENT
  Age: 8 Year
  Sex: Female
  Weight: 25 kg

DRUGS (2)
  1. CHLOROQUINE. [Suspect]
     Active Substance: CHLOROQUINE
     Dosage: WEEKLY REGIMEN
  2. CHLOROQUINE. [Suspect]
     Active Substance: CHLOROQUINE
     Indication: MALARIA PROPHYLAXIS
     Dosage: INITIAL DOSE

REACTIONS (9)
  - Cough [Fatal]
  - Circulatory collapse [Fatal]
  - Plasmodium falciparum infection [Fatal]
  - Malaise [Fatal]
  - Vomiting [Fatal]
  - Drug ineffective [Fatal]
  - Chills [Fatal]
  - Pyrexia [Fatal]
  - Fatigue [Fatal]
